FAERS Safety Report 9779020 (Version 1)
Quarter: 2013Q4

REPORT INFORMATION
  Report Type: Spontaneous
  Country: IT (occurrence: IT)
  Receive Date: 20131223
  Receipt Date: 20131223
  Transmission Date: 20140711
  Serious: Yes (Death, Other)
  Sender: FDA-Public Use
  Company Number: PHHY2013IT148762

PATIENT
  Age: 26 Year
  Sex: Male

DRUGS (4)
  1. DIAMORPHINE HYDROCHLORIDE [Suspect]
  2. CITALOPRAM [Suspect]
  3. CAFFEINE [Suspect]
  4. PARACETAMOL [Suspect]

REACTIONS (3)
  - Toxicity to various agents [Fatal]
  - Overdose [Fatal]
  - Myocardial necrosis [Unknown]
